FAERS Safety Report 6950856-3 (Version None)
Quarter: 2010Q3

REPORT INFORMATION
  Report Type: 
  Country: None (occurrence: None)
  Receive Date: 20100828
  Receipt Date: 20100301
  Transmission Date: 20110219
  Serious: No
  Sender: FDA-Public Use
  Company Number: US-ABBOTT-10P-163-0629818-00

PATIENT
  Sex: Male

DRUGS (2)
  1. NIASPAN [Suspect]
     Indication: BLOOD CHOLESTEROL INCREASED
     Dates: start: 20000101
  2. HEART MEDICATIONS [Concomitant]
     Indication: CARDIAC OPERATION
     Dates: start: 20000101

REACTIONS (2)
  - FLUSHING [None]
  - PARAESTHESIA [None]
